FAERS Safety Report 5151045-8 (Version None)
Quarter: 2006Q4

REPORT INFORMATION
  Report Type: 
  Country: None (occurrence: None)
  Receive Date: 20061114
  Receipt Date: 20061114
  Transmission Date: 20070319
  Serious: Yes (Hospitalization)
  Sender: FDA-Public Use
  Company Number: None

PATIENT
  Age: 56 Year
  Sex: Male
  Weight: 70 kg

DRUGS (12)
  1. BEVACIZUMAB 10 MG/M2 WEEKS 1,3,5,7 [Suspect]
     Indication: NEOPLASM MALIGNANT
     Dosage: 812MG WKS 1,3,5 DELAYED
     Dates: start: 20060912
  2. BEVACIZUMAB 10 MG/M2 WEEKS 1,3,5,7 [Suspect]
     Indication: NEOPLASM MALIGNANT
     Dosage: 812MG WKS 1,3,5 DELAYED
     Dates: start: 20060926
  3. BEVACIZUMAB 10 MG/M2 WEEKS 1,3,5,7 [Suspect]
     Indication: NEOPLASM MALIGNANT
     Dosage: 812MG WKS 1,3,5 DELAYED
     Dates: start: 20061016
  4. CISPLATIN [Suspect]
     Indication: NEOPLASM MALIGNANT
     Dosage: 65 MG WKS X 3 DAYS
     Dates: start: 20060912, end: 20060914
  5. CISPLATIN [Suspect]
     Indication: NEOPLASM MALIGNANT
     Dosage: 65 MG WKS X 3 DAYS
     Dates: start: 20061016, end: 20061018
  6. ERLOTINIB [Concomitant]
  7. ZOFRAN [Concomitant]
  8. DUCLOLAX [Concomitant]
  9. DECADRON [Concomitant]
  10. PRILOSEC [Concomitant]
  11. COMPAZINE [Concomitant]
  12. SENNA-S [Concomitant]

REACTIONS (2)
  - NAUSEA [None]
  - VOMITING [None]
